FAERS Safety Report 4794062-X (Version None)
Quarter: 2005Q4

REPORT INFORMATION
  Report Type: 
  Country: None (occurrence: None)
  Receive Date: 20051011
  Receipt Date: 20011025
  Transmission Date: 20060501
  Serious: Yes (Life-Threatening, Other)
  Sender: FDA-Public Use
  Company Number: US-MERCK-01104504

PATIENT
  Age: 48 Year
  Sex: Female
  Weight: 95 kg

DRUGS (1)
  1. VIOXX [Suspect]
     Indication: ARTHRALGIA
     Route: 048

REACTIONS (17)
  - ANXIETY [None]
  - CARDIOVASCULAR DISORDER [None]
  - CHEST PAIN [None]
  - CONTUSION [None]
  - DIZZINESS [None]
  - ELECTROCARDIOGRAM ABNORMAL [None]
  - EMOTIONAL DISTRESS [None]
  - FOOT FRACTURE [None]
  - FRACTURE NONUNION [None]
  - GASTROOESOPHAGEAL REFLUX DISEASE [None]
  - HYPERTENSION [None]
  - INSOMNIA [None]
  - OSTEOARTHRITIS [None]
  - PATELLOFEMORAL PAIN SYNDROME [None]
  - PNEUMONIA [None]
  - RHEUMATOID ARTHRITIS [None]
  - UPPER RESPIRATORY TRACT INFECTION [None]
